FAERS Safety Report 23086858 (Version 10)
Quarter: 2025Q3

REPORT INFORMATION
  Report Type: Spontaneous
  Country: US (occurrence: US)
  Receive Date: 20231020
  Receipt Date: 20250709
  Transmission Date: 20251021
  Serious: Yes (Other)
  Sender: SANOFI AVENTIS
  Company Number: US-SA-SAC20231012001641

PATIENT
  Age: 52 Year
  Sex: Female

DRUGS (23)
  1. DUPIXENT [Suspect]
     Active Substance: DUPILUMAB
     Indication: Dermatitis atopic
     Route: 058
     Dates: start: 20231011, end: 20231011
  2. DUPIXENT [Suspect]
     Active Substance: DUPILUMAB
     Dosage: 300 MG, QOW
     Route: 058
     Dates: start: 20231011
  3. FISH OIL [Concomitant]
     Active Substance: FISH OIL
  4. LAMICTAL [Concomitant]
     Active Substance: LAMOTRIGINE
  5. PEPCID [Concomitant]
     Active Substance: FAMOTIDINE
  6. PRIMROSE OIL [Concomitant]
  7. VITAMIN C [Concomitant]
     Active Substance: ASCORBIC ACID
  8. VITAMIN D3 [Concomitant]
     Active Substance: CHOLECALCIFEROL
  9. ZYRTEC [Concomitant]
     Active Substance: CETIRIZINE HYDROCHLORIDE
  10. CYANOCOBALAMIN [Concomitant]
     Active Substance: CYANOCOBALAMIN
  11. HYDROCHLOROTHIAZIDE [Concomitant]
     Active Substance: HYDROCHLOROTHIAZIDE
  12. VITAMINS NOS [Concomitant]
     Active Substance: VITAMINS
  13. NORETHINDRONE [Concomitant]
     Active Substance: NORETHINDRONE
  14. YAZ [Concomitant]
     Active Substance: DROSPIRENONE\ETHINYL ESTRADIOL
  15. ADVAIR HFA [Concomitant]
     Active Substance: FLUTICASONE PROPIONATE\SALMETEROL XINAFOATE
  16. MONTELUKAST [Concomitant]
     Active Substance: MONTELUKAST
  17. NAPROXEN [Concomitant]
     Active Substance: NAPROXEN
  18. ONDANSETRON [Concomitant]
     Active Substance: ONDANSETRON
  19. FLUOCINOLONE ACET [Concomitant]
  20. HYDROCHLOROTHIAZIDE [Concomitant]
     Active Substance: HYDROCHLOROTHIAZIDE
  21. SINGULAIR [Concomitant]
     Active Substance: MONTELUKAST SODIUM
  22. CURCUMIN [Concomitant]
     Active Substance: CURCUMIN
  23. LAMOTRIGINE [Concomitant]
     Active Substance: LAMOTRIGINE

REACTIONS (10)
  - Multiple sclerosis [Not Recovered/Not Resolved]
  - Infection [Not Recovered/Not Resolved]
  - Oropharyngeal pain [Not Recovered/Not Resolved]
  - Skin discomfort [Recovering/Resolving]
  - Sleep disorder due to a general medical condition [Not Recovered/Not Resolved]
  - Eye irritation [Unknown]
  - Dermatitis atopic [Unknown]
  - Rash [Not Recovered/Not Resolved]
  - Drug ineffective [Unknown]
  - Product dose omission in error [Unknown]

NARRATIVE: CASE EVENT DATE: 20230101
